FAERS Safety Report 19201121 (Version 3)
Quarter: 2021Q2

REPORT INFORMATION
  Report Type: Spontaneous
  Country: RS (occurrence: RS)
  Receive Date: 20210430
  Receipt Date: 20210527
  Transmission Date: 20210717
  Serious: Yes (Death, Hospitalization)
  Sender: FDA-Public Use
  Company Number: RS-BIOGEN-2021BI01006057

PATIENT
  Sex: Female

DRUGS (3)
  1. SPINRAZA [Suspect]
     Active Substance: NUSINERSEN
     Route: 037
     Dates: start: 20210401
  2. SPINRAZA [Suspect]
     Active Substance: NUSINERSEN
     Indication: SPINAL MUSCULAR ATROPHY
     Route: 037
     Dates: start: 2018, end: 20210401
  3. SPINRAZA [Suspect]
     Active Substance: NUSINERSEN
     Route: 065

REACTIONS (6)
  - Disseminated intravascular coagulation [Fatal]
  - Dehydration [Fatal]
  - Gastroenteritis clostridial [Fatal]
  - Acute kidney injury [Fatal]
  - Shock [Fatal]
  - Cardio-respiratory arrest [Fatal]

NARRATIVE: CASE EVENT DATE: 20210407
